FAERS Safety Report 26075298 (Version 1)
Quarter: 2025Q4

REPORT INFORMATION
  Report Type: Spontaneous
  Country: US (occurrence: None)
  Receive Date: 20251120
  Receipt Date: 20251120
  Transmission Date: 20260117
  Serious: Yes (unspecified)
  Sender: FDA-CTU
  Company Number: None

PATIENT
  Age: 23 Year
  Sex: Female
  Weight: 94.5 kg

DRUGS (6)
  1. JOURNAVX [Suspect]
     Active Substance: SUZETRIGINE
     Indication: Pain
     Dosage: OTHER QUANTITY : 2 TABLET(S);?FREQUENCY : EVERY 12 HOURS;
     Route: 048
     Dates: start: 20251120, end: 20251120
  2. JOURNAVX [Suspect]
     Active Substance: SUZETRIGINE
     Indication: High frequency ablation
  3. IUD NOS [Concomitant]
     Active Substance: COPPER OR LEVONORGESTREL
  4. GABAPENTIN [Concomitant]
     Active Substance: GABAPENTIN
  5. VYEPTI [Concomitant]
     Active Substance: EPTINEZUMAB-JJMR
  6. BOTOX [Concomitant]
     Active Substance: ONABOTULINUMTOXINA

REACTIONS (7)
  - Pruritus [None]
  - Cyanosis [None]
  - Nausea [None]
  - Dyspnoea [None]
  - Muscle spasms [None]
  - Dizziness [None]
  - Dysarthria [None]

NARRATIVE: CASE EVENT DATE: 20251120
